FAERS Safety Report 4430727-7 (Version None)
Quarter: 2004Q3

REPORT INFORMATION
  Report Type: 
  Country: None (occurrence: None)
  Receive Date: 20040818
  Receipt Date: 20040805
  Transmission Date: 20050211
  Serious: Yes (Life-Threatening, Hospitalization)
  Sender: FDA-Public Use
  Company Number: 2004AP03626

PATIENT
  Age: 46 Year
  Sex: Male

DRUGS (13)
  1. IRESSA [Suspect]
     Indication: LUNG ADENOCARCINOMA
     Dosage: 250 MG DAILY PO
     Route: 048
     Dates: start: 20040406, end: 20040627
  2. IRESSA [Suspect]
     Indication: NON-SMALL CELL LUNG CANCER
     Dosage: 250 MG DAILY PO
     Route: 048
     Dates: start: 20040406, end: 20040627
  3. MS CONTIN [Concomitant]
  4. DECADRON [Concomitant]
  5. DEPAKENE [Concomitant]
  6. GASTER D [Concomitant]
  7. BENZALIN [Concomitant]
  8. DEPAS [Concomitant]
  9. DOCETAXEL [Concomitant]
  10. CARBOPLATIN [Concomitant]
  11. RADIATION THERAPY [Concomitant]
  12. VINORELBINE TARTRATE [Concomitant]
  13. GEMCITABINE [Concomitant]

REACTIONS (13)
  - ANAEMIA [None]
  - ARTHRALGIA [None]
  - BACTERIAL INFECTION [None]
  - DIARRHOEA [None]
  - DISSEMINATED INTRAVASCULAR COAGULATION [None]
  - HAEMORRHAGIC DIATHESIS [None]
  - HENOCH-SCHONLEIN PURPURA [None]
  - LIVER DISORDER [None]
  - MALAISE [None]
  - MELAENA [None]
  - RASH [None]
  - SHOCK [None]
  - STAPHYLOCOCCAL INFECTION [None]
